FAERS Safety Report 21388522 (Version 1)
Quarter: 2022Q3

REPORT INFORMATION
  Report Type: Report from Study
  Country: RO (occurrence: None)
  Receive Date: 20220928
  Receipt Date: 20220928
  Transmission Date: 20221027
  Serious: Yes (Hospitalization)
  Sender: FDA-Public Use
  Company Number: RO-ROCHE-3071335

PATIENT
  Age: 65 Year
  Sex: Female
  Weight: 73 kg

DRUGS (7)
  1. ATEZOLIZUMAB [Suspect]
     Active Substance: ATEZOLIZUMAB
     Indication: Breast cancer
     Dosage: ON 13/APR/2022, RECEIVED LAST DOSE OF DRUG PRIOR TO SAE WAS 1200 MG
     Route: 041
     Dates: start: 20220131
  2. EPIRUBICIN [Suspect]
     Active Substance: EPIRUBICIN
     Indication: Breast cancer
     Dosage: ON 14/MAR/2022,  20/APR/2022, RECEIVED LAST DOSE (155MG) OF DRUG PRIOR TO SAE .
     Route: 042
     Dates: start: 20220131
  3. CYCLOPHOSPHAMIDE [Suspect]
     Active Substance: CYCLOPHOSPHAMIDE
     Indication: Breast cancer
     Dosage: ON 14/MAR/2022, 20/APR/2022, RECEIVED LAST DOSE OF DRUG PRIOR TO SAE WAS 1032
     Route: 042
     Dates: start: 20220131
  4. CARBOPLATIN [Suspect]
     Active Substance: CARBOPLATIN
     Indication: Breast cancer
     Dosage: LAST DOSE (195MG) BEFORE SAE 20/04/2022
     Route: 042
     Dates: start: 20220413
  5. TRASTUZUMAB [Suspect]
     Active Substance: TRASTUZUMAB
     Indication: Breast cancer
     Dosage: LAST DOSE (584 MG) BEFORE SAE 20/APR/2022
     Route: 041
     Dates: start: 20220413
  6. PERTUZUMAB [Suspect]
     Active Substance: PERTUZUMAB
     Indication: Breast cancer
     Dosage: LAST DOSE (840MG) BEFORE SAE WAS GIVEN ON 20/04/2022
     Route: 042
     Dates: start: 20220413
  7. PACLITAXEL [Suspect]
     Active Substance: PACLITAXEL
     Indication: Breast cancer
     Dosage: ON 20/APR/2022 LAST DOSE (155MG ) BEFORE SAE. ON DAY 1 AND DAY 8 EVERY 3 WEEKS
     Route: 042
     Dates: start: 20220413

REACTIONS (2)
  - Anaemia [Recovered/Resolved]
  - Thrombocytopenia [Not Recovered/Not Resolved]

NARRATIVE: CASE EVENT DATE: 20220405
